FAERS Safety Report 5956391-3 (Version None)
Quarter: 2008Q4

REPORT INFORMATION
  Report Type: 
  Country: None (occurrence: None)
  Receive Date: 20081112
  Receipt Date: 20081106
  Transmission Date: 20090506
  Serious: Yes (Death)
  Sender: FDA-Public Use
  Company Number: 2008SP022638

PATIENT
  Age: 21 Year
  Sex: Male

DRUGS (1)
  1. NOXAFIL [Suspect]
     Indication: LEUKAEMIA
     Dosage: 300 MG' BID

REACTIONS (2)
  - PYREXIA [None]
  - SEPSIS [None]
